FAERS Safety Report 19617740 (Version 3)
Quarter: 2021Q3

REPORT INFORMATION
  Report Type: Spontaneous
  Country: US (occurrence: US)
  Receive Date: 20210728
  Receipt Date: 20210928
  Transmission Date: 20211014
  Serious: Yes (Other)
  Sender: FDA-Public Use
  Company Number: US-JNJFOC-20210741161

PATIENT
  Age: 8 Decade
  Sex: Male

DRUGS (1)
  1. NEUTROGENA COOLDRY SPORT SUNSCREEN BROAD SPECTRUM SPF30 [Suspect]
     Active Substance: AVOBENZONE\HOMOSALATE\OCTISALATE\OCTOCRYLENE\OXYBENZONE
     Indication: PRODUCT USED FOR UNKNOWN INDICATION
     Dosage: TWICE A WEEK GOOD SPRAY ON BOTH ARMS
     Route: 061
     Dates: start: 201905

REACTIONS (1)
  - Benign neoplasm of skin [Recovering/Resolving]

NARRATIVE: CASE EVENT DATE: 202103
